FAERS Safety Report 24623119 (Version 1)
Quarter: 2024Q4

REPORT INFORMATION
  Report Type: Spontaneous
  Country: BE (occurrence: None)
  Receive Date: 20241115
  Receipt Date: 20241115
  Transmission Date: 20250115
  Serious: Yes (Other)
  Sender: Alvotech
  Company Number: BE-ALVOTECHPMS-2024-ALVOTECHPMS-002589

PATIENT
  Age: 72 Year
  Sex: Male

DRUGS (2)
  1. USTEKINUMAB [Suspect]
     Active Substance: USTEKINUMAB
     Indication: Crohn^s disease
     Dosage: EVERY EIGHT WEEKS
     Dates: start: 201707, end: 20210815
  2. USTEKINUMAB [Suspect]
     Active Substance: USTEKINUMAB
     Indication: Crohn^s disease

REACTIONS (1)
  - Osteonecrosis of jaw [Unknown]
